FAERS Safety Report 14201395 (Version 1)
Quarter: 2017Q4

REPORT INFORMATION
  Report Type: Spontaneous
  Country: US (occurrence: US)
  Receive Date: 20171117
  Receipt Date: 20171117
  Transmission Date: 20180321
  Serious: No
  Sender: FDA-Public Use
  Company Number: US-PERRIGO-17US003001

PATIENT
  Age: 80 Year
  Sex: Female
  Weight: 52.34 kg

DRUGS (16)
  1. POLYETHYLENE GLYCOL 3350. [Suspect]
     Active Substance: POLYETHYLENE GLYCOL 3350
     Indication: CONSTIPATION
     Dosage: APPROXIMATELY 8.5 G, QAM
     Route: 048
     Dates: start: 2012, end: 201610
  2. BENEFIBER                          /01648102/ [Suspect]
     Active Substance: GUAR GUM
     Indication: IRRITABLE BOWEL SYNDROME
     Dosage: 1 TEASPOON, BID
     Route: 048
     Dates: start: 20170327
  3. SIMVASTATIN. [Concomitant]
     Active Substance: SIMVASTATIN
     Indication: BLOOD CHOLESTEROL INCREASED
     Dosage: UNK
     Route: 065
  4. MIDODRINE [Concomitant]
     Active Substance: MIDODRINE
     Indication: HYPERTENSION
     Dosage: UNK
     Route: 065
  5. POLYETHYLENE GLYCOL 3350. [Suspect]
     Active Substance: POLYETHYLENE GLYCOL 3350
     Indication: IRRITABLE BOWEL SYNDROME
     Dosage: APPROXIMATELY 8.5 G, BID
     Route: 048
     Dates: start: 20170327
  6. POLYETHYLENE GLYCOL 3350. [Suspect]
     Active Substance: POLYETHYLENE GLYCOL 3350
     Indication: INTESTINAL OBSTRUCTION
     Dosage: APPROXIMATELY 8.5 G, BID
     Route: 048
     Dates: start: 201610, end: 20170325
  7. BENEFIBER /01648102/ [Suspect]
     Active Substance: GUAR GUM
     Indication: CONSTIPATION
     Dosage: 1 TEASPOON, QAM
     Route: 048
     Dates: start: 2012, end: 201610
  8. BUSPIRONE [Concomitant]
     Active Substance: BUSPIRONE HYDROCHLORIDE
     Indication: ANXIETY
     Dosage: UNK
     Route: 065
  9. GAS-X [Concomitant]
     Active Substance: DIMETHICONE
     Indication: FLATULENCE
     Dosage: UNK
     Route: 065
  10. ONDANSETRON [Concomitant]
     Active Substance: ONDANSETRON
     Indication: NAUSEA
     Dosage: UNK
     Route: 065
  11. BENEFIBER                          /01648102/ [Suspect]
     Active Substance: GUAR GUM
     Indication: INTESTINAL OBSTRUCTION
     Dosage: 1 TEASPOON, BID
     Route: 048
     Dates: start: 201610, end: 20170325
  12. ALLEGRA [Concomitant]
     Active Substance: FEXOFENADINE HYDROCHLORIDE
     Indication: SEASONAL ALLERGY
     Dosage: UNK
     Route: 065
  13. ONDANSETRON [Concomitant]
     Active Substance: ONDANSETRON
     Indication: VOMITING
  14. GAS-X [Concomitant]
     Active Substance: DIMETHICONE
     Dosage: UNK, 4 TIMES DIALY
     Route: 065
     Dates: start: 201701
  15. VITAMIN D3 [Concomitant]
     Active Substance: CHOLECALCIFEROL
     Indication: SUPPLEMENTATION THERAPY
     Dosage: UNK
     Route: 065
  16. OMEPRAZOLE. [Concomitant]
     Active Substance: OMEPRAZOLE
     Indication: GASTROOESOPHAGEAL REFLUX DISEASE
     Dosage: UNK
     Route: 065

REACTIONS (5)
  - Abdominal distension [Not Recovered/Not Resolved]
  - Off label use [Unknown]
  - Inappropriate schedule of drug administration [Unknown]
  - Underdose [Unknown]
  - Incorrect drug administration duration [Unknown]

NARRATIVE: CASE EVENT DATE: 2012
